FAERS Safety Report 7820943-6 (Version None)
Quarter: 2011Q4

REPORT INFORMATION
  Report Type: 
  Country: None (occurrence: None)
  Receive Date: 20111018
  Receipt Date: 20111017
  Transmission Date: 20120403
  Serious: Yes (Hospitalization)
  Sender: FDA-Public Use
  Company Number: US-GLAXOSMITHKLINE-B0756186A

PATIENT
  Age: 64 Year
  Sex: Male

DRUGS (1)
  1. AVANDIA [Suspect]
     Indication: DIABETES MELLITUS
     Dosage: 4MG PER DAY
     Route: 048
     Dates: start: 20060428, end: 20070308

REACTIONS (5)
  - CORONARY ARTERY DISEASE [None]
  - PAIN [None]
  - HYPERTENSION [None]
  - CORONARY ARTERY BYPASS [None]
  - HEART RATE INCREASED [None]
